FAERS Safety Report 8709996 (Version 3)
Quarter: 2013Q1

REPORT INFORMATION
  Report Type: Spontaneous
  Country: US (occurrence: None)
  Receive Date: 20120720
  Receipt Date: 20130307
  Transmission Date: 20140127
  Serious: Yes (Death, Other)
  Sender: FDA-Public Use
  Company Number: TPA2012A04340

PATIENT
  Age: 56 Year
  Sex: Female
  Weight: 84.82 kg

DRUGS (5)
  1. ACTOS [Suspect]
     Indication: TYPE 2 DIABETES MELLITUS
     Route: 048
     Dates: start: 2011, end: 20110301
  2. GLYBURIDE(GLIBENCLAMIDE) [Concomitant]
  3. METFORMIN(METFORMIN) [Concomitant]
  4. SIMVASTATIN(SIMVASTATIN) [Concomitant]
  5. WELLBUTRIN(BUPROPION HYDROCHLORIDE) [Concomitant]

REACTIONS (2)
  - Non-small cell lung cancer metastatic [None]
  - Cardiac arrest [None]
